FAERS Safety Report 8283542-0 (Version None)
Quarter: 2012Q2

REPORT INFORMATION
  Report Type: 
  Country: None (occurrence: None)
  Receive Date: 20120413
  Receipt Date: 20120404
  Transmission Date: 20120825
  Serious: Yes (Hospitalization, Other)
  Sender: FDA-Public Use
  Company Number: US-ASTRAZENECA-2011SE69694

PATIENT
  Age: 75 Year
  Sex: Female
  Weight: 48.7 kg

DRUGS (3)
  1. OTHER [Suspect]
     Route: 065
  2. NEXIUM [Concomitant]
  3. PULMICORT [Suspect]
     Indication: CHRONIC OBSTRUCTIVE PULMONARY DISEASE
     Route: 055

REACTIONS (3)
  - PNEUMONIA [None]
  - ENCEPHALITIS VIRAL [None]
  - HERPES ZOSTER [None]
